FAERS Safety Report 16392437 (Version 1)
Quarter: 2019Q2

REPORT INFORMATION
  Report Type: Spontaneous
  Country: US (occurrence: US)
  Receive Date: 20190605
  Receipt Date: 20190605
  Transmission Date: 20190711
  Serious: No
  Sender: FDA-Public Use
  Company Number: US-ROCHE-2199531

PATIENT
  Sex: Female

DRUGS (5)
  1. BENADRYL [Concomitant]
     Active Substance: DIPHENHYDRAMINE HYDROCHLORIDE
     Indication: DYSPNOEA
     Route: 042
     Dates: start: 20181010
  2. OCREVUS [Suspect]
     Active Substance: OCRELIZUMAB
     Dosage: ONGOING: UNKNOWN
     Route: 065
  3. OCREVUS [Suspect]
     Active Substance: OCRELIZUMAB
     Indication: RELAPSING-REMITTING MULTIPLE SCLEROSIS
     Dosage: 1ST OCREVUS INFUSION.
     Route: 065
     Dates: start: 20181010, end: 20181010
  4. BENADRYL [Concomitant]
     Active Substance: DIPHENHYDRAMINE HYDROCHLORIDE
     Indication: CHILLS
  5. SALINE [SODIUM CHLORIDE] [Suspect]
     Active Substance: SODIUM CHLORIDE
     Indication: PRODUCT PREPARATION ISSUE
     Route: 065
     Dates: start: 20181010

REACTIONS (3)
  - Dyspnoea [Unknown]
  - Product preparation issue [Unknown]
  - Chills [Unknown]

NARRATIVE: CASE EVENT DATE: 20181010
